FAERS Safety Report 6928401-8 (Version None)
Quarter: 2010Q3

REPORT INFORMATION
  Report Type: 
  Country: None (occurrence: None)
  Receive Date: 20100810
  Receipt Date: 20100730
  Transmission Date: 20110219
  Serious: Yes (Other)
  Sender: FDA-Public Use
  Company Number: 012825

PATIENT
  Sex: Male
  Weight: 7.8 kg

DRUGS (3)
  1. KEPPRA [Suspect]
     Indication: EPILEPSY
     Dosage: 1000 MG TRANSPLACENTAL, 2000 MG TRANSPLACENTAL
     Route: 064
     Dates: end: 20080905
  2. KEPPRA [Suspect]
     Indication: EPILEPSY
     Dosage: 1000 MG TRANSPLACENTAL, 2000 MG TRANSPLACENTAL
     Route: 064
     Dates: start: 20050101
  3. KEPPRA [Suspect]
     Indication: EPILEPSY
     Dosage: 1000 MG TRANSPLACENTAL, 2000 MG TRANSPLACENTAL
     Route: 064
     Dates: start: 20080906

REACTIONS (7)
  - AMBLYOPIA [None]
  - CONJUNCTIVAL CYST [None]
  - GASTROOESOPHAGEAL REFLUX DISEASE [None]
  - GROWTH RETARDATION [None]
  - HYPERMETROPIA [None]
  - MATERNAL DRUGS AFFECTING FOETUS [None]
  - STRABISMUS [None]
